FAERS Safety Report 6911210-3 (Version None)
Quarter: 2010Q3

REPORT INFORMATION
  Report Type: 
  Country: None (occurrence: None)
  Receive Date: 20100806
  Receipt Date: 20100727
  Transmission Date: 20110219
  Serious: Yes (Hospitalization)
  Sender: FDA-Public Use
  Company Number: DE-JNJFOC-20100207589

PATIENT
  Age: 24 Year
  Sex: Male
  Weight: 73 kg

DRUGS (1)
  1. REMICADE [Suspect]
     Indication: COLITIS ULCERATIVE
     Route: 042

REACTIONS (3)
  - APHASIA [None]
  - ENCEPHALITIS [None]
  - HEMIPLEGIA [None]
